FAERS Safety Report 14892258 (Version 1)
Quarter: 2018Q2

REPORT INFORMATION
  Report Type: Spontaneous
  Country: US (occurrence: US)
  Receive Date: 20180514
  Receipt Date: 20180514
  Transmission Date: 20180711
  Serious: No
  Sender: FDA-Public Use
  Company Number: US-UNITED THERAPEUTICS-UNT-2018-001014

PATIENT
  Age: 51 Year
  Sex: Female
  Weight: 68.27 kg

DRUGS (3)
  1. ORENITRAM [Suspect]
     Active Substance: TREPROSTINIL
     Indication: PULMONARY ARTERIAL HYPERTENSION
     Dosage: 10 MG, TID
     Route: 048
     Dates: start: 20171017
  2. ADCIRCA [Concomitant]
     Active Substance: TADALAFIL
     Indication: PRODUCT USED FOR UNKNOWN INDICATION
     Route: 065
  3. ORENITRAM [Suspect]
     Active Substance: TREPROSTINIL
     Dosage: 5 MG, TID
     Route: 048

REACTIONS (3)
  - Palpitations [Unknown]
  - Dyspnoea [Unknown]
  - Heart rate irregular [Unknown]

NARRATIVE: CASE EVENT DATE: 201801
